FAERS Safety Report 10757829 (Version 1)
Quarter: 2015Q1

REPORT INFORMATION
  Report Type: Spontaneous
  Country: IN (occurrence: IN)
  Receive Date: 20150203
  Receipt Date: 20150203
  Transmission Date: 20150721
  Serious: Yes (Death, Hospitalization)
  Sender: FDA-Public Use
  Company Number: IN-SA-2015SA009456

PATIENT
  Age: 46 Year
  Sex: Female

DRUGS (1)
  1. DOCETAXEL. [Suspect]
     Active Substance: DOCETAXEL
     Indication: BREAST CANCER METASTATIC
     Route: 042

REACTIONS (27)
  - Vomiting [Fatal]
  - Pulse abnormal [Fatal]
  - Oral disorder [Fatal]
  - Aspartate aminotransferase increased [Fatal]
  - Skin exfoliation [Fatal]
  - Toxic epidermal necrolysis [Fatal]
  - Pyrexia [Fatal]
  - Blood pH decreased [Fatal]
  - Encephalopathy [Fatal]
  - Altered state of consciousness [Fatal]
  - Drug eruption [Fatal]
  - Blood pressure decreased [Fatal]
  - Mucosal inflammation [Fatal]
  - Blood urea increased [Fatal]
  - Malaise [Fatal]
  - Performance status decreased [Fatal]
  - Blood bilirubin increased [Fatal]
  - Blood bicarbonate decreased [Fatal]
  - Alopecia [Fatal]
  - Excoriation [Fatal]
  - Dysphagia [Fatal]
  - Rash macular [Fatal]
  - Hypernatraemia [Fatal]
  - Chills [Fatal]
  - Respiratory rate increased [Fatal]
  - Blister [Fatal]
  - Alanine aminotransferase increased [Fatal]
